FAERS Safety Report 5692756-5 (Version None)
Quarter: 2008Q2

REPORT INFORMATION
  Report Type: 
  Country: None (occurrence: None)
  Receive Date: 20080401
  Receipt Date: 20080321
  Transmission Date: 20081010
  Serious: Yes (Hospitalization)
  Sender: FDA-Public Use
  Company Number: 232379J08USA

PATIENT
  Age: 47 Year
  Sex: Male
  Weight: 77.1115 kg

DRUGS (4)
  1. REBIF [Suspect]
     Indication: MULTIPLE SCLEROSIS
     Dosage: 44 MCG, 3 IN 1 WEEKS, SUBCUTANEOUS
     Route: 058
     Dates: start: 20050422
  2. BACLOFEN [Concomitant]
  3. AMANTADINE HCL [Concomitant]
  4. VALIUM [Concomitant]

REACTIONS (3)
  - INGROWN HAIR [None]
  - STAPHYLOCOCCAL INFECTION [None]
  - THROMBOSIS [None]
